FAERS Safety Report 4804747-4 (Version None)
Quarter: 2005Q4

REPORT INFORMATION
  Report Type: 
  Country: None (occurrence: None)
  Receive Date: 20051017
  Receipt Date: 20051006
  Transmission Date: 20060501
  Serious: Yes (Life-Threatening)
  Sender: FDA-Public Use
  Company Number: HQWYE945710OCT05

PATIENT

DRUGS (1)
  1. RAPAMUNE [Suspect]
     Indication: PROPHYLAXIS AGAINST TRANSPLANT REJECTION
     Dosage: ORAL
     Route: 048

REACTIONS (2)
  - NEPHROTIC SYNDROME [None]
  - PROTEINURIA [None]
